FAERS Safety Report 5333465-1 (Version None)
Quarter: 2007Q2

REPORT INFORMATION
  Report Type: 
  Country: None (occurrence: None)
  Receive Date: 20070522
  Receipt Date: 20070522
  Transmission Date: 20071010
  Serious: Yes (Hospitalization)
  Sender: FDA-Public Use
  Company Number: None

PATIENT
  Age: 80 Year
  Sex: Male

DRUGS (2)
  1. METOPROLOL SUCCINATE EXTENDED RELEASE [Suspect]
     Indication: ATRIAL FIBRILLATION
     Dosage: 50 MG DAILY
  2. METOPROLOL SUCCINATE EXTENDED RELEASE [Suspect]
     Indication: HYPERTENSION
     Dosage: 50 MG DAILY

REACTIONS (5)
  - ALCOHOLIC LIVER DISEASE [None]
  - DIARRHOEA [None]
  - HEPATITIS [None]
  - METASTASES TO LIVER [None]
  - OEDEMA PERIPHERAL [None]
